FAERS Safety Report 6596495-8 (Version None)
Quarter: 2010Q1

REPORT INFORMATION
  Report Type: 
  Country: None (occurrence: None)
  Receive Date: 20100223
  Receipt Date: 20100212
  Transmission Date: 20100710
  Serious: Yes (Life-Threatening)
  Sender: FDA-Public Use
  Company Number: JP-AMGEN-US386037

PATIENT
  Sex: Female
  Weight: 50 kg

DRUGS (11)
  1. ENBREL [Suspect]
     Indication: RHEUMATOID ARTHRITIS
     Route: 058
     Dates: start: 20091211, end: 20091218
  2. RHEUMATREX [Concomitant]
     Indication: RHEUMATOID ARTHRITIS
     Dosage: 2 MG UNSPECIFIED FREQUENCY
     Route: 048
     Dates: end: 20091224
  3. PREDNISOLONE [Concomitant]
     Indication: RHEUMATOID ARTHRITIS
     Route: 048
  4. PREDNISOLONE [Concomitant]
  5. PREDNISOLONE [Concomitant]
  6. LIVALO [Concomitant]
     Indication: DYSLIPIDAEMIA
     Route: 048
  7. MUCOSTA [Concomitant]
     Indication: PROPHYLAXIS AGAINST GASTROINTESTINAL ULCER
     Route: 048
  8. DEPAS [Concomitant]
     Route: 048
  9. METHYCOBAL [Concomitant]
     Route: 048
  10. RIMATIL [Concomitant]
     Indication: RHEUMATOID ARTHRITIS
     Route: 048
  11. LOXONIN [Concomitant]
     Indication: RHEUMATOID ARTHRITIS
     Route: 048

REACTIONS (2)
  - ORGANISING PNEUMONIA [None]
  - RESPIRATORY FAILURE [None]
